FAERS Safety Report 4643124-6 (Version None)
Quarter: 2005Q2

REPORT INFORMATION
  Report Type: 
  Country: None (occurrence: None)
  Receive Date: 20050422
  Receipt Date: 20050203
  Transmission Date: 20051028
  Serious: Yes (Hospitalization)
  Sender: FDA-Public Use
  Company Number: JP-MERCK-0502USA00634

PATIENT
  Age: 77 Year
  Sex: Male
  Weight: 72 kg

DRUGS (15)
  1. ALDOMET [Suspect]
     Indication: ESSENTIAL HYPERTENSION
     Route: 048
     Dates: start: 20041212, end: 20041224
  2. LASIX [Concomitant]
     Indication: ESSENTIAL HYPERTENSION
     Route: 048
  3. ALDACTONE [Concomitant]
     Indication: ESSENTIAL HYPERTENSION
     Route: 048
  4. MAINTATE [Concomitant]
     Indication: ESSENTIAL HYPERTENSION
     Route: 048
  5. ADALAT [Concomitant]
     Indication: ESSENTIAL HYPERTENSION
     Route: 048
  6. CARDENALIN [Concomitant]
     Indication: ESSENTIAL HYPERTENSION
     Route: 048
  7. THYRADIN-S [Concomitant]
     Indication: HYPOTHYROIDISM
     Route: 048
  8. ZYLORIC [Concomitant]
     Indication: HYPERURICAEMIA
     Route: 048
  9. LIPOVAS [Concomitant]
     Indication: HYPERLIPIDAEMIA
     Route: 048
  10. ASPIRIN [Concomitant]
     Indication: ANGINA PECTORIS
     Route: 048
  11. ITOROL [Concomitant]
     Indication: ANGINA PECTORIS
     Route: 048
  12. PEPCID [Concomitant]
     Indication: GASTRIC ULCER
     Route: 048
  13. MICARDIS [Concomitant]
     Indication: ESSENTIAL HYPERTENSION
     Route: 048
  14. AMLODIN [Concomitant]
     Indication: ESSENTIAL HYPERTENSION
     Route: 048
  15. ITOROL [Concomitant]
     Route: 065

REACTIONS (4)
  - C-REACTIVE PROTEIN INCREASED [None]
  - DRUG INEFFECTIVE [None]
  - PYREXIA [None]
  - WHITE BLOOD CELL COUNT INCREASED [None]
